FAERS Safety Report 4443652-2 (Version None)
Quarter: 2004Q3

REPORT INFORMATION
  Report Type: 
  Country: None (occurrence: None)
  Receive Date: 20040908
  Receipt Date: 20040903
  Transmission Date: 20050211
  Serious: Yes (Other)
  Sender: FDA-Public Use
  Company Number: US-GLAXOSMITHKLINE-A0524711A

PATIENT
  Age: 23 Year
  Sex: Female

DRUGS (3)
  1. SUMATRIPTAN [Suspect]
     Indication: MIGRAINE
     Route: 058
     Dates: start: 20040201
  2. PRENATAL VITAMINS [Concomitant]
  3. CALCIUM SUPPLEMENT [Concomitant]

REACTIONS (2)
  - ABORTION INDUCED [None]
  - DRUG EXPOSURE DURING PREGNANCY [None]
